FAERS Safety Report 8086268-1 (Version None)
Quarter: 2012Q1

REPORT INFORMATION
  Report Type: 
  Country: None (occurrence: None)
  Receive Date: 20120128
  Receipt Date: 20110503
  Transmission Date: 20120608
  Serious: No
  Sender: FDA-Public Use
  Company Number: US-ABBOTT-11P-163-0722382-00

PATIENT
  Sex: Female

DRUGS (2)
  1. ISONIAZID [Concomitant]
     Indication: TUBERCULIN TEST POSITIVE
     Dosage: WILL BE TAKING FOR 9 MONTHS
     Dates: start: 20110201
  2. HUMIRA [Suspect]
     Indication: PSORIASIS
     Route: 058
     Dates: start: 20110225

REACTIONS (4)
  - INJECTION SITE HAEMATOMA [None]
  - INJECTION SITE HAEMORRHAGE [None]
  - DRUG DOSE OMISSION [None]
  - DEVICE MALFUNCTION [None]
